FAERS Safety Report 17244332 (Version 9)
Quarter: 2023Q1

REPORT INFORMATION
  Report Type: Spontaneous
  Country: US (occurrence: US)
  Receive Date: 20200107
  Receipt Date: 20230221
  Transmission Date: 20230417
  Serious: Yes (Other)
  Sender: FDA-Public Use
  Company Number: US-GILEAD-2019-0444850

PATIENT
  Sex: Male
  Weight: 86.168 kg

DRUGS (32)
  1. STRIBILD [Suspect]
     Active Substance: COBICISTAT\ELVITEGRAVIR\EMTRICITABINE\TENOFOVIR DISOPROXIL FUMARATE
     Indication: HIV infection
     Dosage: UNK
     Route: 048
     Dates: start: 201302, end: 201604
  2. STRIBILD [Suspect]
     Active Substance: COBICISTAT\ELVITEGRAVIR\EMTRICITABINE\TENOFOVIR DISOPROXIL FUMARATE
     Dosage: UNK
     Route: 048
     Dates: start: 2012, end: 201606
  3. STRIBILD [Suspect]
     Active Substance: COBICISTAT\ELVITEGRAVIR\EMTRICITABINE\TENOFOVIR DISOPROXIL FUMARATE
     Dosage: UNK
     Route: 065
     Dates: start: 201312, end: 201606
  4. TRUVADA [Suspect]
     Active Substance: EMTRICITABINE\TENOFOVIR DISOPROXIL FUMARATE
     Indication: HIV infection
     Dosage: UNK
     Route: 048
     Dates: start: 201002, end: 201204
  5. TRUVADA [Suspect]
     Active Substance: EMTRICITABINE\TENOFOVIR DISOPROXIL FUMARATE
     Dosage: UNK
     Route: 048
     Dates: start: 200501, end: 201212
  6. VIREAD [Suspect]
     Active Substance: TENOFOVIR DISOPROXIL FUMARATE
     Indication: HIV infection
     Dosage: UNK
     Route: 048
     Dates: start: 20030201, end: 200403
  7. VIREAD [Suspect]
     Active Substance: TENOFOVIR DISOPROXIL FUMARATE
     Dosage: UNK
     Route: 048
     Dates: start: 200212, end: 200501
  8. VIREAD [Suspect]
     Active Substance: TENOFOVIR DISOPROXIL FUMARATE
     Dosage: UNK
     Route: 048
     Dates: start: 2004, end: 2016
  9. BIKTARVY [Concomitant]
     Active Substance: BICTEGRAVIR SODIUM\EMTRICITABINE\TENOFOVIR ALAFENAMIDE FUMARATE
  10. GENVOYA [Concomitant]
     Active Substance: COBICISTAT\ELVITEGRAVIR\EMTRICITABINE\TENOFOVIR ALAFENAMIDE FUMARATE
  11. CRIXIVAN [Concomitant]
     Active Substance: INDINAVIR SULFATE
  12. EPIVIR [Concomitant]
     Active Substance: LAMIVUDINE
  13. FUZEON [Concomitant]
     Active Substance: ENFUVIRTIDE
  14. ISENTRESS [Concomitant]
     Active Substance: RALTEGRAVIR POTASSIUM
  15. KALETRA [Concomitant]
     Active Substance: LOPINAVIR\RITONAVIR
  16. NORVIR [Concomitant]
     Active Substance: RITONAVIR
  17. RETROVIR [Concomitant]
     Active Substance: ZIDOVUDINE
  18. SUSTIVA [Concomitant]
     Active Substance: EFAVIRENZ
  19. TRIZIVIR [Concomitant]
     Active Substance: ABACAVIR SULFATE\LAMIVUDINE\ZIDOVUDINE
  20. VIDEX [Concomitant]
     Active Substance: DIDANOSINE
  21. VIDEX EC [Concomitant]
     Active Substance: DIDANOSINE
  22. VIRACEPT [Concomitant]
     Active Substance: NELFINAVIR MESYLATE
  23. ZIAGEN [Concomitant]
     Active Substance: ABACAVIR SULFATE
  24. ZERIT [Concomitant]
     Active Substance: STAVUDINE
  25. CARVEDILOL [Concomitant]
     Active Substance: CARVEDILOL
  26. LOSARTAN [Concomitant]
     Active Substance: LOSARTAN
  27. CLOPIDOGREL [Concomitant]
     Active Substance: CLOPIDOGREL BISULFATE
  28. GEMFIBROZIL [Concomitant]
     Active Substance: GEMFIBROZIL
  29. ROSUVASTATIN [Concomitant]
     Active Substance: ROSUVASTATIN
  30. ASPIRIN [Concomitant]
     Active Substance: ASPIRIN
  31. CLARITIN-D NOS [Concomitant]
     Active Substance: LORATADINE\PSEUDOEPHEDRINE SULFATE
  32. LEXIVA [Concomitant]
     Active Substance: FOSAMPRENAVIR CALCIUM

REACTIONS (10)
  - Chronic kidney disease [Not Recovered/Not Resolved]
  - Chronic kidney disease [Not Recovered/Not Resolved]
  - Renal failure [Unknown]
  - Drug resistance [Unknown]
  - Skeletal injury [Unknown]
  - Anhedonia [Not Recovered/Not Resolved]
  - Emotional distress [Not Recovered/Not Resolved]
  - Anxiety [Not Recovered/Not Resolved]
  - Pain [Not Recovered/Not Resolved]
  - Depression [Not Recovered/Not Resolved]

NARRATIVE: CASE EVENT DATE: 20070101
